FAERS Safety Report 24857195 (Version 1)
Quarter: 2025Q1

REPORT INFORMATION
  Report Type: Spontaneous
  Country: JP (occurrence: JP)
  Receive Date: 20250117
  Receipt Date: 20250117
  Transmission Date: 20250408
  Serious: Yes (Death, Other)
  Sender: JAZZ
  Company Number: JP-JAZZ PHARMACEUTICALS-2024-JP-023811

PATIENT
  Age: 70 Year
  Sex: Male

DRUGS (1)
  1. VYXEOS [Suspect]
     Active Substance: CYTARABINE\DAUNORUBICIN
     Indication: Acute myeloid leukaemia recurrent
     Route: 042
     Dates: start: 20241108, end: 20241112

REACTIONS (2)
  - Acute myeloid leukaemia [Fatal]
  - Blast cell count increased [Unknown]

NARRATIVE: CASE EVENT DATE: 20240101
